FAERS Safety Report 6519844-5 (Version None)
Quarter: 2009Q4

REPORT INFORMATION
  Report Type: 
  Country: None (occurrence: None)
  Receive Date: 20091228
  Receipt Date: 20091228
  Transmission Date: 20100525
  Serious: Yes (Other)
  Sender: FDA-Public Use
  Company Number: None

PATIENT
  Age: 59 Year
  Sex: Female
  Weight: 74.8435 kg

DRUGS (1)
  1. ZICAM ZICAM GLUCONICUM ZICAM LLC 2X [Suspect]
     Indication: NASOPHARYNGITIS
     Dosage: ONE TUBE EVERY FOUR HOURS NASAL
     Route: 045

REACTIONS (1)
  - ANOSMIA [None]
